FAERS Safety Report 4697035-0 (Version None)
Quarter: 2005Q2

REPORT INFORMATION
  Report Type: 
  Country: None (occurrence: None)
  Receive Date: 20050620
  Receipt Date: 20050422
  Transmission Date: 20051028
  Serious: No
  Sender: FDA-Public Use
  Company Number: US-YAMANOUCHI-YPA20050220

PATIENT
  Age: 62 Year
  Sex: Female

DRUGS (4)
  1. VESICARE [Suspect]
     Indication: HYPERTONIC BLADDER
     Dates: start: 20050301
  2. LISINOPRIL [Concomitant]
  3. PREVACID [Concomitant]
  4. OXYTROL [Concomitant]

REACTIONS (3)
  - CONSTIPATION [None]
  - MUSCLE TWITCHING [None]
  - RECTAL CRAMPS [None]
